FAERS Safety Report 19994423 (Version 3)
Quarter: 2021Q4

REPORT INFORMATION
  Report Type: Report from Study
  Country: US (occurrence: US)
  Receive Date: 20211026
  Receipt Date: 20211130
  Transmission Date: 20220303
  Serious: Yes (Hospitalization, Other)
  Sender: FDA-Public Use
  Company Number: US-INSMED, INC.-2021-08823-US

PATIENT
  Sex: Female

DRUGS (2)
  1. ARIKAYCE [Suspect]
     Active Substance: AMIKACIN
     Indication: Mycobacterium avium complex infection
     Dosage: 590 MILLIGRAM, QD
     Route: 055
     Dates: start: 20210623, end: 202108
  2. ARIKAYCE [Suspect]
     Active Substance: AMIKACIN
     Dosage: 590 MILLIGRAM, QD
     Route: 055
     Dates: start: 20210809

REACTIONS (13)
  - Hospitalisation [Unknown]
  - Heart rate decreased [Recovered/Resolved]
  - Diverticulitis [Unknown]
  - Arthritis [Unknown]
  - Dysgeusia [Recovering/Resolving]
  - Throat irritation [Recovered/Resolved]
  - Aphonia [Unknown]
  - Cough [Recovered/Resolved]
  - Dysphonia [Unknown]
  - Asthenia [Unknown]
  - Product dose omission issue [Unknown]
  - Therapy interrupted [Unknown]
  - Intentional dose omission [Unknown]

NARRATIVE: CASE EVENT DATE: 20210101
